FAERS Safety Report 7402062-6 (Version None)
Quarter: 2011Q2

REPORT INFORMATION
  Report Type: 
  Country: None (occurrence: None)
  Receive Date: 20110403
  Receipt Date: 20110403
  Transmission Date: 20111010
  Serious: Yes (Hospitalization)
  Sender: FDA-Public Use
  Company Number: None

PATIENT
  Sex: Male

DRUGS (1)
  1. UP + UP ALCOHOL PAD 80CT BENZCN TRIAD DISPOSABLES, INC [Suspect]
     Dosage: TOP
     Route: 061
     Dates: start: 20110309, end: 20110309

REACTIONS (1)
  - CELLULITIS [None]
